FAERS Safety Report 5154796-4 (Version None)
Quarter: 2006Q4

REPORT INFORMATION
  Report Type: 
  Country: None (occurrence: None)
  Receive Date: 20061121
  Receipt Date: 20060629
  Transmission Date: 20070319
  Serious: Yes (Other)
  Sender: FDA-Public Use
  Company Number: FR-BAYER-200610618BFR

PATIENT
  Sex: Female

DRUGS (1)
  1. ASPIRINE DU RHONE [Suspect]
     Indication: UNEVALUABLE EVENT
     Route: 048

REACTIONS (3)
  - APHASIA [None]
  - HEMIPLEGIA [None]
  - PHARMACEUTICAL PRODUCT COMPLAINT [None]
